FAERS Safety Report 5023259-9 (Version None)
Quarter: 2006Q2

REPORT INFORMATION
  Report Type: 
  Country: None (occurrence: None)
  Receive Date: 20060605
  Receipt Date: 20060522
  Transmission Date: 20061013
  Serious: Yes (Hospitalization)
  Sender: FDA-Public Use
  Company Number: GXKR2006PL02923

PATIENT
  Age: 21 Year
  Sex: Female
  Weight: 50 kg

DRUGS (1)
  1. LEKOKLAR (NGX) (CLARITHROMYCIN) UNKNOWN [Suspect]
     Indication: UPPER RESPIRATORY TRACT INFECTION
     Dosage: ONE DOSE, ORAL
     Route: 048
     Dates: start: 20060222, end: 20060222

REACTIONS (3)
  - FACE OEDEMA [None]
  - PRURITUS [None]
  - RASH GENERALISED [None]
